FAERS Safety Report 8183603-0 (Version None)
Quarter: 2012Q1

REPORT INFORMATION
  Report Type: 
  Country: None (occurrence: None)
  Receive Date: 20120305
  Receipt Date: 20120302
  Transmission Date: 20120608
  Serious: Yes (Hospitalization, Other)
  Sender: FDA-Public Use
  Company Number: US-PFIZER INC-2012057061

PATIENT
  Sex: Female
  Weight: 65.76 kg

DRUGS (4)
  1. LIPITOR [Suspect]
     Indication: BLOOD CHOLESTEROL INCREASED
     Dosage: 10 MG, DAILY
  2. LIPITOR [Suspect]
     Dosage: 20 MG, DAILY
  3. LIPITOR [Suspect]
     Dosage: 40 MG, DAILY
  4. METFORMIN [Concomitant]
     Indication: TYPE 2 DIABETES MELLITUS
     Dosage: 1000 MG, DAILY

REACTIONS (1)
  - BREAST CANCER [None]
